FAERS Safety Report 6144839-3 (Version None)
Quarter: 2009Q2

REPORT INFORMATION
  Report Type: 
  Country: None (occurrence: None)
  Receive Date: 20090401
  Receipt Date: 20090401
  Transmission Date: 20091009
  Serious: Yes (Life-Threatening, Hospitalization)
  Sender: FDA-Public Use
  Company Number: None

PATIENT
  Age: 56 Year
  Sex: Male
  Weight: 104.1 kg

DRUGS (2)
  1. REGULAR INSULIN [Suspect]
     Indication: DIABETES MELLITUS
     Dosage: 10 UNITS BID SQ
     Dates: start: 20090204, end: 20090205
  2. INSULIN ASPART [Suspect]
     Dosage: 40 UNITS AT BEDTIME SQ
     Dates: start: 20090204, end: 20090205

REACTIONS (4)
  - HYPERGLYCAEMIA [None]
  - HYPOGLYCAEMIA [None]
  - TREATMENT NONCOMPLIANCE [None]
  - UNRESPONSIVE TO STIMULI [None]
